FAERS Safety Report 5475019-2 (Version None)
Quarter: 2007Q4

REPORT INFORMATION
  Report Type: 
  Country: None (occurrence: None)
  Receive Date: 20071002
  Receipt Date: 20070724
  Transmission Date: 20080405
  Serious: Yes (Death, Hospitalization)
  Sender: FDA-Public Use
  Company Number: SK-ELI_LILLY_AND_COMPANY-SK200707004302

PATIENT
  Age: 55 Year
  Sex: Male

DRUGS (4)
  1. HUMULIN R [Suspect]
     Indication: DIABETES MELLITUS
     Dosage: UNK, UNK
     Route: 058
     Dates: start: 20060401, end: 20061001
  2. HUMULIN R [Suspect]
     Dosage: 12 IU MORNING, 10 IU NOON, 10 IU EVENING
     Route: 058
     Dates: start: 20061001
  3. HUMULIN N [Suspect]
     Indication: DIABETES MELLITUS
     Dosage: UNK, UNK
     Route: 058
     Dates: start: 20060401, end: 20061001
  4. HUMULIN N [Suspect]
     Dosage: 10 IU, EACH EVENING
     Route: 058
     Dates: start: 20061001

REACTIONS (1)
  - PANCREATIC CARCINOMA [None]
